FAERS Safety Report 15783304 (Version 1)
Quarter: 2019Q1

REPORT INFORMATION
  Report Type: Spontaneous
  Country: US (occurrence: US)
  Receive Date: 20190102
  Receipt Date: 20190102
  Transmission Date: 20190417
  Serious: No
  Sender: FDA-Public Use
  Company Number: US-PFIZER INC-2018531964

PATIENT
  Age: 68 Year
  Sex: Male
  Weight: 81.65 kg

DRUGS (1)
  1. NEURONTIN [Suspect]
     Active Substance: GABAPENTIN
     Indication: MUSCLE SPASMS
     Dosage: UNK

REACTIONS (1)
  - Drug ineffective [Unknown]
